FAERS Safety Report 7795966-6 (Version None)
Quarter: 2011Q4

REPORT INFORMATION
  Report Type: 
  Country: None (occurrence: None)
  Receive Date: 20111004
  Receipt Date: 20110923
  Transmission Date: 20120403
  Serious: Yes (Hospitalization)
  Sender: FDA-Public Use
  Company Number: US-BAYER-2011-027800

PATIENT
  Age: 24 Year
  Sex: Female
  Weight: 69.841 kg

DRUGS (6)
  1. YASMIN [Suspect]
     Indication: CONTRACEPTION
     Dosage: UNK
     Dates: start: 20030101, end: 20040501
  2. PRENATAL VITAMINS [Concomitant]
     Indication: PRENATAL CARE
     Dosage: UNK
     Route: 048
     Dates: start: 20040101, end: 20050101
  3. HISTINEX PV [Concomitant]
     Indication: ANTIALLERGIC THERAPY
     Dosage: UNK
     Route: 048
     Dates: start: 20031204
  4. ZITHROMAX [Concomitant]
     Indication: ANTIBIOTIC THERAPY
     Dosage: 250 MG, UNK
     Route: 048
     Dates: start: 20031202, end: 20031211
  5. YASMIN [Suspect]
     Indication: PREMENSTRUAL SYNDROME
     Dosage: UNK
     Dates: start: 20051101
  6. TAMIFLU [Concomitant]
     Indication: INFLUENZA
     Dosage: 75 MG, UNK
     Route: 048
     Dates: start: 20031204

REACTIONS (7)
  - PAIN [None]
  - ANXIETY [None]
  - GALLBLADDER INJURY [None]
  - INJURY [None]
  - GENERAL PHYSICAL HEALTH DETERIORATION [None]
  - EMOTIONAL DISTRESS [None]
  - ANHEDONIA [None]
